FAERS Safety Report 7910568-6 (Version None)
Quarter: 2011Q4

REPORT INFORMATION
  Report Type: 
  Country: None (occurrence: None)
  Receive Date: 20111111
  Receipt Date: 20111109
  Transmission Date: 20120403
  Serious: Yes (Hospitalization, Other)
  Sender: FDA-Public Use
  Company Number: US-PFIZER INC-2011275106

PATIENT
  Sex: Male
  Weight: 92.971 kg

DRUGS (3)
  1. GEODON [Suspect]
     Indication: BIPOLAR DISORDER
     Dosage: 160 MG (2 OF 80MG), 1X/DAY
     Route: 048
     Dates: start: 20080101, end: 20081001
  2. GEODON [Suspect]
     Dosage: 80 MG, 1X/DAY
     Route: 048
     Dates: start: 20081001, end: 20090101
  3. DEPAKOTE [Concomitant]
     Dosage: UNK

REACTIONS (10)
  - URINARY INCONTINENCE [None]
  - DIARRHOEA [None]
  - IMPAIRED DRIVING ABILITY [None]
  - DYSGRAPHIA [None]
  - TINNITUS [None]
  - TOXICITY TO VARIOUS AGENTS [None]
  - ABNORMAL BEHAVIOUR [None]
  - FATIGUE [None]
  - GRIP STRENGTH DECREASED [None]
  - VISUAL IMPAIRMENT [None]
